FAERS Safety Report 9332632 (Version 5)
Quarter: 2014Q1

REPORT INFORMATION
  Report Type: Report from Study
  Country: ES (occurrence: ES)
  Receive Date: 20130606
  Receipt Date: 20140113
  Transmission Date: 20141002
  Serious: Yes (Death, Hospitalization, Other)
  Sender: FDA-Public Use
  Company Number: ES-BAYER-2013-065744

PATIENT
  Age: 64 Year
  Sex: Male

DRUGS (12)
  1. REGORAFENIB [Suspect]
     Indication: GASTROINTESTINAL STROMAL TUMOUR
     Dosage: DAILY DOSE 160 MG
     Route: 048
     Dates: start: 20130511, end: 20130527
  2. REGORAFENIB [Suspect]
     Indication: GASTROINTESTINAL STROMAL TUMOUR
     Dosage: 120 MG/DAY
     Dates: start: 20130615, end: 20130705
  3. REGORAFENIB [Suspect]
     Indication: GASTROINTESTINAL STROMAL TUMOUR
     Dosage: UNK
  4. REGORAFENIB [Suspect]
     Indication: GASTROINTESTINAL STROMAL TUMOUR
     Dosage: UNK
     Dates: start: 20131105, end: 20131118
  5. MIRTAZAPINE [Suspect]
     Indication: ANTIDEPRESSANT THERAPY
     Dosage: 30 MG, QD
     Route: 048
     Dates: start: 20130520, end: 20130527
  6. VENLAFAXINE [Suspect]
     Indication: ANTIDEPRESSANT THERAPY
     Dosage: 37.5 MG TO 65 MG, QD
     Route: 048
     Dates: start: 20130520, end: 20130527
  7. ALPRAZOLAM [Suspect]
     Indication: ANTIDEPRESSANT THERAPY
     Dosage: 0.5 MG, QD
     Route: 048
     Dates: start: 20130520
  8. METFORMINE [Concomitant]
     Indication: TYPE 2 DIABETES MELLITUS
     Dosage: 850 MG (1/2-0-1/2)
  9. LANTUS [Concomitant]
     Dosage: 26 IU, QD
     Route: 058
  10. PANTOPRAZOLE [Concomitant]
     Dosage: 40 MG (1-0-0)
  11. ENALAPRIL [Concomitant]
  12. MEGESTROL [Concomitant]

REACTIONS (7)
  - Disorientation [Recovered/Resolved]
  - Hyponatraemia [Recovering/Resolving]
  - Hypoglycaemia [Recovered/Resolved]
  - Bronchospasm [None]
  - Gastrointestinal stromal tumour [Fatal]
  - Hypothyroidism [None]
  - Anaemia [None]
